FAERS Safety Report 6304490-9 (Version None)
Quarter: 2009Q3

REPORT INFORMATION
  Report Type: 
  Country: None (occurrence: None)
  Receive Date: 20090811
  Receipt Date: 20090804
  Transmission Date: 20100115
  Serious: Yes (Other)
  Sender: FDA-Public Use
  Company Number: US-BAYER-200926136NA

PATIENT
  Age: 71 Year
  Sex: Female
  Weight: 94 kg

DRUGS (10)
  1. NEXAVAR [Suspect]
     Indication: RENAL CELL CARCINOMA
     Dosage: TOTAL DAILY DOSE: 800 MG  UNIT DOSE: 200 MG
     Route: 048
     Dates: start: 20080507, end: 20080601
  2. NEXAVAR [Suspect]
     Dosage: TOTAL DAILY DOSE: 400 MG  UNIT DOSE: 200 MG
     Route: 048
     Dates: start: 20080701, end: 20080806
  3. PREDNISONE [Concomitant]
  4. NIFEDIPINE [Concomitant]
  5. METOPROLOL TARTRATE [Concomitant]
  6. TYLENOL (CAPLET) [Concomitant]
  7. DOCUSATE SODIUM [Concomitant]
  8. LIPITOR [Concomitant]
  9. FOLIC + B12 [Concomitant]
  10. NORCO [Concomitant]

REACTIONS (5)
  - DRY SKIN [None]
  - NASAL SEPTUM PERFORATION [None]
  - PAIN IN EXTREMITY [None]
  - RASH ERYTHEMATOUS [None]
  - SKIN TOXICITY [None]
